FAERS Safety Report 5941504-X (Version None)
Quarter: 2008Q4

REPORT INFORMATION
  Report Type: 
  Country: None (occurrence: None)
  Receive Date: 20081103
  Receipt Date: 20081103
  Transmission Date: 20090506
  Serious: Yes (Hospitalization)
  Sender: FDA-Public Use
  Company Number: None

PATIENT
  Age: 71 Year
  Sex: Male
  Weight: 97 kg

DRUGS (5)
  1. AVASTIN [Suspect]
     Indication: GASTRIC CANCER
     Dosage: 7.5 EVERY 21 DAYS IV DRIP
     Route: 041
     Dates: start: 20080926, end: 20081017
  2. TAXOTERE [Suspect]
     Indication: GASTRIC CANCER
     Dosage: 70 EVERY 21 DAYS IV DRIP
     Route: 041
     Dates: start: 20080926, end: 20081017
  3. OXALIPLATIN [Suspect]
     Indication: GASTRIC CANCER
     Dosage: 75 EVERY 21 DAYS IV DRIP
     Route: 041
     Dates: start: 20080926, end: 20081017
  4. ZOFRAN [Concomitant]
  5. ZANTAC [Concomitant]

REACTIONS (3)
  - CHOLECYSTITIS [None]
  - DEHYDRATION [None]
  - DIARRHOEA [None]
